FAERS Safety Report 21668193 (Version 1)
Quarter: 2022Q4

REPORT INFORMATION
  Report Type: Spontaneous
  Country: US (occurrence: None)
  Receive Date: 20221130
  Receipt Date: 20221130
  Transmission Date: 20230112
  Serious: No
  Sender: FDA-Public Use
  Company Number: None

PATIENT
  Sex: Female

DRUGS (3)
  1. ERLEADA [Suspect]
     Active Substance: APALUTAMIDE
  2. COSMETICS [Suspect]
     Active Substance: COSMETICS
  3. ERLEADA [Concomitant]
     Active Substance: APALUTAMIDE

REACTIONS (1)
  - Seizure [None]
